FAERS Safety Report 6764319-1 (Version None)
Quarter: 2010Q2

REPORT INFORMATION
  Report Type: 
  Country: None (occurrence: None)
  Receive Date: 20100610
  Receipt Date: 20090716
  Transmission Date: 20101027
  Serious: No
  Sender: FDA-Public Use
  Company Number: US-BRISTOL-MYERS SQUIBB COMPANY-14626998

PATIENT
  Age: 73 Year
  Sex: Male

DRUGS (4)
  1. MONOPRIL [Suspect]
     Indication: HYPERTENSION
     Route: 048
     Dates: start: 20020101, end: 20060101
  2. LISINOPRIL [Suspect]
     Dosage: FORM-TAB.
  3. ZETIA [Concomitant]
  4. ZOCOR [Concomitant]

REACTIONS (2)
  - DRY EYE [None]
  - MEDICATION ERROR [None]
